FAERS Safety Report 9215516 (Version 1)
Quarter: 2013Q2

REPORT INFORMATION
  Report Type: Spontaneous
  Country: GB (occurrence: GB)
  Receive Date: 20130406
  Receipt Date: 20130406
  Transmission Date: 20140414
  Serious: Yes (Other)
  Sender: FDA-Public Use
  Company Number: GB-B.I. PHARMACEUTICALS,INC./RIDGEFIELD-2013-UK-00841UK

PATIENT
  Age: 87 Year
  Sex: Male
  Weight: 74.6 kg

DRUGS (7)
  1. PRADAXA [Suspect]
     Dates: start: 20121220, end: 20121225
  2. FINASTERIDE [Concomitant]
     Dates: start: 20121129, end: 20121227
  3. FINASTERIDE [Concomitant]
     Dates: start: 20130104, end: 20130201
  4. OMEPRAZOLE [Concomitant]
     Dates: start: 20121129, end: 20121227
  5. OMEPRAZOLE [Concomitant]
     Dates: start: 20130104, end: 20130201
  6. TAMSULOSIN HYDROCHLORIDE [Concomitant]
     Dates: start: 20121129, end: 20121229
  7. TAMSULOSIN HYDROCHLORIDE [Concomitant]
     Dates: start: 20130104, end: 20130203

REACTIONS (1)
  - Liver function test abnormal [Recovered/Resolved]
